FAERS Safety Report 5714272-4 (Version None)
Quarter: 2008Q2

REPORT INFORMATION
  Report Type: 
  Country: None (occurrence: None)
  Receive Date: 20080422
  Receipt Date: 20080422
  Transmission Date: 20081010
  Serious: No
  Sender: FDA-Public Use
  Company Number: None

PATIENT
  Age: 54 Year
  Sex: Male

DRUGS (1)
  1. ALPRAZOLAM [Suspect]
     Dosage: 1 MG PO
     Route: 048
     Dates: start: 20080408, end: 20080408

REACTIONS (3)
  - PRURITUS [None]
  - RASH [None]
  - URTICARIA [None]
